FAERS Safety Report 7401816 (Version 8)
Quarter: 2015Q2

REPORT INFORMATION
  Report Type: Spontaneous
  Country: US (occurrence: US)
  Receive Date: 20100527
  Receipt Date: 20150430
  Transmission Date: 20150821
  Serious: Yes (Hospitalization, Disabling, Other)
  Sender: FDA-Public Use
  Company Number: US-PFIZER INC-2003161760US

PATIENT
  Age: 38 Year
  Sex: Female
  Weight: 61 kg

DRUGS (6)
  1. TYLENOL [Concomitant]
     Active Substance: ACETAMINOPHEN
     Indication: PAIN
     Dosage: UNK
  2. CELEBREX [Suspect]
     Active Substance: CELECOXIB
     Indication: TENDONITIS
  3. BEXTRA [Suspect]
     Active Substance: VALDECOXIB
     Indication: CARPAL TUNNEL SYNDROME
     Dosage: 10 MG, 2X/DAY
     Route: 048
     Dates: start: 20020620, end: 20021020
  4. CELEBREX [Suspect]
     Active Substance: CELECOXIB
     Indication: CARPAL TUNNEL SYNDROME
     Dosage: 200 MG, 1X/DAY
     Route: 048
     Dates: start: 20030109, end: 20030410
  5. BEXTRA [Suspect]
     Active Substance: VALDECOXIB
     Dosage: UNK
     Route: 048
     Dates: start: 20020705
  6. CELEBREX [Suspect]
     Active Substance: CELECOXIB
     Indication: TENOSYNOVITIS
     Dosage: 100 MG, 2X/DAY
     Route: 048
     Dates: start: 200204, end: 20030411

REACTIONS (60)
  - Stevens-Johnson syndrome [Unknown]
  - Leukopenia [Unknown]
  - Renal disorder [Unknown]
  - Hypersensitivity [Unknown]
  - Heart rate increased [Unknown]
  - Rash [Recovering/Resolving]
  - Swelling [Unknown]
  - Urticaria [Unknown]
  - Skin burning sensation [Unknown]
  - Erythema [Unknown]
  - Muscular weakness [Recovering/Resolving]
  - Thyroiditis [Unknown]
  - Bone marrow disorder [Unknown]
  - Heart valve incompetence [Unknown]
  - Lymphadenopathy [Unknown]
  - Alopecia [Recovered/Resolved]
  - Musculoskeletal pain [Unknown]
  - Bone loss [Unknown]
  - Lymphopenia [Unknown]
  - Dyspnoea [Unknown]
  - Pruritus [Unknown]
  - Furuncle [Unknown]
  - Stomatitis [Unknown]
  - Dry mouth [Unknown]
  - Weight increased [Unknown]
  - Motor dysfunction [Unknown]
  - Hyporeflexia [Unknown]
  - Cardiovascular disorder [Unknown]
  - Nightmare [Unknown]
  - Dermatomyositis [Not Recovered/Not Resolved]
  - Haemorrhage [Unknown]
  - Injury [Unknown]
  - Chronic fatigue syndrome [Not Recovered/Not Resolved]
  - Miliaria [Unknown]
  - Hypotonia [Unknown]
  - Onychomadesis [Unknown]
  - Weight decreased [Unknown]
  - Breast mass [Unknown]
  - Flatulence [Unknown]
  - Chills [Unknown]
  - Fibromyalgia [Unknown]
  - Depression [Unknown]
  - Memory impairment [Unknown]
  - Facial wasting [Unknown]
  - Monoplegia [Unknown]
  - Arthritis [Unknown]
  - Asthenia [Unknown]
  - Laceration [Unknown]
  - Nail discolouration [Unknown]
  - Anaemia [Unknown]
  - Lupus-like syndrome [Unknown]
  - Cardiac disorder [Unknown]
  - Cardiac murmur [Unknown]
  - Liver disorder [Unknown]
  - Acne [Unknown]
  - Arthralgia [Unknown]
  - Muscle atrophy [Recovering/Resolving]
  - Headache [Unknown]
  - Muscle atrophy [Unknown]
  - Disturbance in attention [Unknown]

NARRATIVE: CASE EVENT DATE: 2002
